FAERS Safety Report 21260664 (Version 3)
Quarter: 2022Q3

REPORT INFORMATION
  Report Type: Report from Study
  Country: BR (occurrence: BR)
  Receive Date: 20220826
  Receipt Date: 20220929
  Transmission Date: 20221027
  Serious: Yes (Other)
  Sender: FDA-Public Use
  Company Number: BR-JNJFOC-20220845540

PATIENT
  Sex: Female

DRUGS (5)
  1. SIMPONI [Suspect]
     Active Substance: GOLIMUMAB
     Indication: Psoriatic arthropathy
     Route: 058
     Dates: start: 20180725, end: 201909
  2. SIMPONI [Suspect]
     Active Substance: GOLIMUMAB
     Indication: Psoriasis
     Route: 058
     Dates: start: 2020, end: 20220514
  3. METHOTREXATE [Suspect]
     Active Substance: METHOTREXATE
  4. NEUTROGENA [CINOXATE;OXYBENZONE;TITANIUM DIOXIDE] [Concomitant]
     Indication: Product used for unknown indication
  5. CLOBETASOL [Concomitant]
     Active Substance: CLOBETASOL
     Indication: Product used for unknown indication
     Dosage: 0.5

REACTIONS (8)
  - Kidney infection [Unknown]
  - Angina unstable [Unknown]
  - Diabetes mellitus [Unknown]
  - Myocardial infarction [Unknown]
  - Psoriatic arthropathy [Unknown]
  - Depression [Unknown]
  - Anxiety [Unknown]
  - Injury [Unknown]
